FAERS Safety Report 10657230 (Version 2)
Quarter: 2015Q2

REPORT INFORMATION
  Report Type: Report from Study
  Country: US (occurrence: US)
  Receive Date: 20141217
  Receipt Date: 20150619
  Transmission Date: 20150821
  Serious: Yes (Other)
  Sender: FDA-Public Use
  Company Number: US-GILEAD-2014-0127666

PATIENT
  Age: 43 Year
  Sex: Female

DRUGS (1)
  1. AMBRISENTAN [Suspect]
     Active Substance: AMBRISENTAN
     Indication: COR PULMONALE CHRONIC
     Dosage: 10 MG, QD
     Route: 065
     Dates: start: 20130321, end: 20141201

REACTIONS (1)
  - Lung transplant [Unknown]
